FAERS Safety Report 20867578 (Version 2)
Quarter: 2022Q2

REPORT INFORMATION
  Report Type: Report from Study
  Country: BE (occurrence: None)
  Receive Date: 20220524
  Receipt Date: 20220531
  Transmission Date: 20220720
  Serious: Yes (Death)
  Sender: FDA-Public Use
  Company Number: BE-Merck Healthcare KGaA-9324569

PATIENT
  Sex: Male
  Weight: 74 kg

DRUGS (2)
  1. TEPOTINIB [Suspect]
     Active Substance: TEPOTINIB
     Indication: Lung adenocarcinoma
     Dosage: 1 X 14
     Route: 048
     Dates: start: 20210531
  2. TEPOTINIB [Suspect]
     Active Substance: TEPOTINIB
     Route: 048
     Dates: start: 20220331, end: 20220331

REACTIONS (1)
  - Disease progression [Fatal]

NARRATIVE: CASE EVENT DATE: 20220331
